FAERS Safety Report 11394638 (Version 1)
Quarter: 2015Q3

REPORT INFORMATION
  Report Type: Spontaneous
  Country: CA (occurrence: CA)
  Receive Date: 20150819
  Receipt Date: 20150819
  Transmission Date: 20151125
  Serious: Yes (Other)
  Sender: FDA-Public Use
  Company Number: CA-TEVA-587185ACC

PATIENT
  Age: 65 Year
  Sex: Male
  Weight: 72.64 kg

DRUGS (1)
  1. TOPIRAMATE. [Suspect]
     Active Substance: TOPIRAMATE
     Indication: EPILEPSY
     Dosage: 100 MILLIGRAM DAILY;
     Route: 048

REACTIONS (3)
  - Memory impairment [Recovered/Resolved]
  - Mental impairment [Recovered/Resolved]
  - Hypokinesia [Recovered/Resolved]
